FAERS Safety Report 21238570 (Version 1)
Quarter: 2022Q3

REPORT INFORMATION
  Report Type: Spontaneous
  Country: IN (occurrence: IN)
  Receive Date: 20220822
  Receipt Date: 20220822
  Transmission Date: 20221027
  Serious: Yes (Hospitalization, Other)
  Sender: FDA-Public Use
  Company Number: IN-PFIZER INC-202101362252

PATIENT
  Age: 40 Year
  Sex: Male
  Weight: 80 kg

DRUGS (2)
  1. LORLATINIB [Suspect]
     Active Substance: LORLATINIB
     Dosage: 100 MG, 1X/DAY
     Route: 048
     Dates: start: 20210810, end: 202203
  2. LORLATINIB [Suspect]
     Active Substance: LORLATINIB
     Dosage: 100 MG, 1X/DAY
     Route: 048
     Dates: start: 20220509

REACTIONS (10)
  - Pneumonia [Unknown]
  - Dyspnoea [Unknown]
  - Pyrexia [Unknown]
  - Cough [Unknown]
  - Peripheral swelling [Unknown]
  - Headache [Unknown]
  - Oedema peripheral [Unknown]
  - Blood pressure increased [Unknown]
  - Neoplasm progression [Unknown]
  - Lung opacity [Unknown]
